FAERS Safety Report 23162635 (Version 1)
Quarter: 2023Q4

REPORT INFORMATION
  Report Type: Spontaneous
  Country: DE (occurrence: DE)
  Receive Date: 20231109
  Receipt Date: 20231109
  Transmission Date: 20240110
  Serious: Yes (Other)
  Sender: FDA-Public Use
  Company Number: None

PATIENT
  Sex: Male
  Weight: 79 kg

DRUGS (2)
  1. COLESEVELAM HYDROCHLORIDE [Suspect]
     Active Substance: COLESEVELAM HYDROCHLORIDE
     Indication: Low density lipoprotein increased
     Dosage: 6 {DF} (EVERY ONE DAY) QD
     Route: 048
     Dates: start: 20220908, end: 20220917
  2. FLUVASTATIN [Suspect]
     Active Substance: FLUVASTATIN SODIUM
     Indication: Low density lipoprotein increased
     Dosage: 20 MILLIGRAM, QD (EVERY ONE DAY)
     Route: 048
     Dates: start: 20220930, end: 20221003

REACTIONS (1)
  - Faecaloma [Recovered/Resolved]
